FAERS Safety Report 8569741-9 (Version None)
Quarter: 2012Q3

REPORT INFORMATION
  Report Type: 
  Country: None (occurrence: None)
  Receive Date: 20120803
  Receipt Date: 20120629
  Transmission Date: 20120928
  Serious: No
  Sender: FDA-Public Use
  Company Number: US-ABBOTT-12P-163-0951932-00

PATIENT
  Sex: Male
  Weight: 115.77 kg

DRUGS (8)
  1. METOPROLOL TARTRATE [Concomitant]
     Indication: PRODUCT USED FOR UNKNOWN INDICATION
  2. NIASPAN [Suspect]
     Dosage: LAST NIGHT
     Dates: end: 20120628
  3. NIASPAN [Suspect]
     Dosage: 500MG X 2 PILLS
  4. LANTUS [Concomitant]
     Indication: PRODUCT USED FOR UNKNOWN INDICATION
  5. LISINOPRIL [Concomitant]
     Indication: PRODUCT USED FOR UNKNOWN INDICATION
  6. NIASPAN [Suspect]
  7. METFORMIN HYDROCHLORIDE [Concomitant]
     Indication: PRODUCT USED FOR UNKNOWN INDICATION
  8. NIASPAN [Suspect]
     Indication: HIGH DENSITY LIPOPROTEIN DECREASED
     Dates: start: 20120301

REACTIONS (5)
  - BLOOD CHOLESTEROL INCREASED [None]
  - ERYTHEMA [None]
  - RASH [None]
  - URTICARIA [None]
  - FLUSHING [None]
